FAERS Safety Report 8772957 (Version 2)
Quarter: 2012Q4

REPORT INFORMATION
  Report Type: Report from Study
  Country: US (occurrence: US)
  Receive Date: 20120907
  Receipt Date: 20120925
  Transmission Date: 20130627
  Serious: Yes (Hospitalization, Other)
  Sender: FDA-Public Use
  Company Number: US-ABBOTT-12P-163-0975079-00

PATIENT
  Age: 50 None
  Sex: Female

DRUGS (10)
  1. HUMIRA PEN [Suspect]
     Indication: PSORIASIS
     Dates: start: 2008
  2. PLAVIX [Suspect]
     Indication: STENT PLACEMENT
  3. DIVALPROEX [Concomitant]
     Indication: CONVULSION
  4. LYRICA [Concomitant]
     Indication: CONVULSION
  5. LYRICA [Concomitant]
     Indication: NEURALGIA
  6. LEVOTHYROXINE [Concomitant]
     Indication: HYPOTHYROIDISM
  7. PREDNISONE [Concomitant]
     Indication: ARTHRITIS REACTIVE
  8. HYDROCHLOROQUINE [Concomitant]
     Indication: ARTHRITIS REACTIVE
  9. DIAZEPAM [Concomitant]
     Indication: MUSCLE SPASMS
  10. DIAZEPAM [Concomitant]
     Indication: CONVULSION

REACTIONS (8)
  - Systemic lupus erythematosus [Not Recovered/Not Resolved]
  - Unwanted awareness during anaesthesia [Recovered/Resolved]
  - Abdominal pain upper [Recovered/Resolved]
  - Haemorrhage [Not Recovered/Not Resolved]
  - Back pain [Unknown]
  - Spinal disorder [Unknown]
  - Arthritis reactive [Recovered/Resolved]
  - Localised infection [Recovered/Resolved]
